FAERS Safety Report 15044406 (Version 1)
Quarter: 2018Q2

REPORT INFORMATION
  Report Type: Report from Study
  Country: IT (occurrence: IT)
  Receive Date: 20180621
  Receipt Date: 20180621
  Transmission Date: 20180711
  Serious: Yes (Death, Other)
  Sender: FDA-Public Use
  Company Number: IT-SA-2016SA102826

PATIENT
  Age: 64 Year
  Sex: Female

DRUGS (24)
  1. IRINOTECAN [Suspect]
     Active Substance: IRINOTECAN
     Indication: METASTASES TO LIVER
     Dosage: UNK UNK,UNK
     Route: 065
  2. FOLINIC ACID [Suspect]
     Active Substance: LEUCOVORIN
     Dosage: UNK UNK,UNK
     Route: 065
  3. FOLINIC ACID [Suspect]
     Active Substance: LEUCOVORIN
     Dosage: UNK UNK,UNK
     Route: 065
  4. OXALIPLATIN. [Concomitant]
     Active Substance: OXALIPLATIN
     Indication: ADENOCARCINOMA OF COLON
     Dosage: UNK
  5. FLUOROURACIL. [Suspect]
     Active Substance: FLUOROURACIL
     Dosage: UNK UNK,UNK
     Route: 065
  6. AFLIBERCEPT [Suspect]
     Active Substance: AFLIBERCEPT
     Dosage: UNK UNK,UNK
     Route: 065
  7. CAPECITABINE. [Concomitant]
     Active Substance: CAPECITABINE
     Indication: ADENOCARCINOMA OF COLON
     Dosage: UNK
  8. FOLINIC ACID [Suspect]
     Active Substance: LEUCOVORIN
     Indication: METASTASES TO LIVER
     Dosage: UNK UNK,UNK
     Route: 065
  9. FLUOROURACIL. [Suspect]
     Active Substance: FLUOROURACIL
     Indication: METASTASES TO LIVER
     Dosage: UNK UNK,UNK
     Route: 065
  10. FLUOROURACIL. [Suspect]
     Active Substance: FLUOROURACIL
     Dosage: UNK UNK,UNK
     Route: 065
  11. AFLIBERCEPT [Suspect]
     Active Substance: AFLIBERCEPT
     Indication: ADENOCARCINOMA OF COLON
     Dosage: UNK UNK,UNK
     Route: 065
     Dates: start: 201305
  12. HEPARIN [Concomitant]
     Active Substance: HEPARIN SODIUM
     Indication: DEEP VEIN THROMBOSIS
     Dosage: UNK UNK,BID
  13. AFLIBERCEPT [Suspect]
     Active Substance: AFLIBERCEPT
     Indication: METASTASES TO LIVER
     Dosage: UNK UNK,UNK
     Route: 065
  14. IRINOTECAN [Suspect]
     Active Substance: IRINOTECAN
     Dosage: UNK UNK,UNK
     Route: 065
     Dates: start: 201305
  15. FOLINIC ACID [Suspect]
     Active Substance: LEUCOVORIN
     Dosage: UNK UNK,UNK
     Route: 065
  16. FLUOROURACIL. [Suspect]
     Active Substance: FLUOROURACIL
     Indication: ADENOCARCINOMA OF COLON
     Dosage: UNK UNK,UNK
     Route: 065
     Dates: start: 201305
  17. AFLIBERCEPT [Suspect]
     Active Substance: AFLIBERCEPT
     Dosage: UNK UNK,UNK
     Route: 065
  18. AFLIBERCEPT [Suspect]
     Active Substance: AFLIBERCEPT
     Dosage: UNK UNK,UNK
     Route: 065
  19. IRINOTECAN [Suspect]
     Active Substance: IRINOTECAN
     Indication: ADENOCARCINOMA OF COLON
     Dosage: UNK UNK,UNK
     Route: 065
     Dates: start: 201305
  20. IRINOTECAN [Suspect]
     Active Substance: IRINOTECAN
     Dosage: UNK UNK,UNK
     Route: 065
  21. FOLINIC ACID [Suspect]
     Active Substance: LEUCOVORIN
     Indication: ADENOCARCINOMA OF COLON
     Dosage: UNK UNK,UNK
     Route: 065
     Dates: start: 201305
  22. CETUXIMAB. [Concomitant]
     Active Substance: CETUXIMAB
     Indication: ADENOCARCINOMA OF COLON
     Dosage: UNK
  23. FLUOROURACIL. [Suspect]
     Active Substance: FLUOROURACIL
     Dosage: UNK UNK,UNK
     Route: 065
  24. IRINOTECAN [Suspect]
     Active Substance: IRINOTECAN
     Dosage: UNK UNK,UNK
     Route: 065

REACTIONS (9)
  - Stomatitis [Unknown]
  - Purulent discharge [Recovering/Resolving]
  - Periodontal disease [Unknown]
  - Osteonecrosis of jaw [Recovering/Resolving]
  - Deep vein thrombosis [Unknown]
  - Tooth avulsion [Unknown]
  - Neutropenia [Unknown]
  - Periodontitis [Unknown]
  - Diarrhoea [Unknown]
